FAERS Safety Report 13689042 (Version 1)
Quarter: 2017Q2

REPORT INFORMATION
  Report Type: Spontaneous
  Country: US (occurrence: US)
  Receive Date: 20170624
  Receipt Date: 20170624
  Transmission Date: 20170830
  Serious: Yes (Life-Threatening, Hospitalization, Other)
  Sender: FDA-Public Use
  Company Number: None

PATIENT
  Age: 41 Year
  Sex: Female
  Weight: 54 kg

DRUGS (2)
  1. VALIUM [Concomitant]
     Active Substance: DIAZEPAM
  2. CLONAZEPAM. [Suspect]
     Active Substance: CLONAZEPAM
     Indication: ANXIETY
     Dosage: ?          OTHER STRENGTH:MG;QUANTITY:2 TABLET(S);?
     Route: 048

REACTIONS (18)
  - Panic reaction [None]
  - Throat tightness [None]
  - Gastrointestinal disorder [None]
  - Dyskinesia [None]
  - Nervous system disorder [None]
  - Memory impairment [None]
  - Dizziness [None]
  - Suicidal ideation [None]
  - Tinnitus [None]
  - Derealisation [None]
  - Vertigo [None]
  - Intrusive thoughts [None]
  - Insomnia [None]
  - Tremor [None]
  - Decreased appetite [None]
  - Diplopia [None]
  - Speech disorder [None]
  - Dyspnoea [None]

NARRATIVE: CASE EVENT DATE: 20170201
